FAERS Safety Report 5287061-5 (Version None)
Quarter: 2007Q2

REPORT INFORMATION
  Report Type: 
  Country: None (occurrence: None)
  Receive Date: 20070404
  Receipt Date: 20070323
  Transmission Date: 20071010
  Serious: Yes (Hospitalization)
  Sender: FDA-Public Use
  Company Number: PH-PFIZER INC-2007025860

PATIENT
  Age: 62 Year
  Sex: Female

DRUGS (2)
  1. NEURONTIN [Suspect]
     Indication: NEURALGIA
  2. CYMBALTA [Suspect]

REACTIONS (3)
  - DIZZINESS [None]
  - PALPITATIONS [None]
  - TRIGEMINAL NEURALGIA [None]
